FAERS Safety Report 6826626-3 (Version None)
Quarter: 2010Q3

REPORT INFORMATION
  Report Type: 
  Country: None (occurrence: None)
  Receive Date: 20100709
  Receipt Date: 20100629
  Transmission Date: 20110219
  Serious: Yes (Other)
  Sender: FDA-Public Use
  Company Number: TH-PFIZER INC-2010081213

PATIENT
  Age: 67 Year

DRUGS (1)
  1. LYRICA [Suspect]
     Indication: NEURALGIA
     Dosage: 75 MG, 1X/DAY
     Route: 048
     Dates: start: 20100626, end: 20100628

REACTIONS (6)
  - DIARRHOEA [None]
  - DIZZINESS [None]
  - NAUSEA [None]
  - RENAL FUNCTION TEST ABNORMAL [None]
  - TREMOR [None]
  - VOMITING [None]
